FAERS Safety Report 6602869-9 (Version None)
Quarter: 2010Q1

REPORT INFORMATION
  Report Type: 
  Country: None (occurrence: None)
  Receive Date: 20100226
  Receipt Date: 20100211
  Transmission Date: 20100710
  Serious: Yes (Hospitalization)
  Sender: FDA-Public Use
  Company Number: DK-ELI_LILLY_AND_COMPANY-DK201002004355

PATIENT
  Age: 68 Year
  Sex: Female

DRUGS (2)
  1. TERIPARATIDE [Suspect]
     Indication: OSTEOPOROSIS
     Dosage: 20 UG, UNKNOWN
     Route: 065
     Dates: start: 20100129, end: 20100201
  2. TERIPARATIDE [Suspect]
     Dosage: UNK, UNKNOWN
     Route: 065
     Dates: start: 20100203, end: 20100201

REACTIONS (3)
  - CHEST DISCOMFORT [None]
  - PNEUMONIA [None]
  - TACHYCARDIA [None]
